FAERS Safety Report 10725929 (Version 1)
Quarter: 2015Q1

REPORT INFORMATION
  Report Type: Spontaneous
  Country: JP (occurrence: JP)
  Receive Date: 20150121
  Receipt Date: 20150121
  Transmission Date: 20150721
  Serious: Yes (Other)
  Sender: FDA-Public Use
  Company Number: JP-CIPLA LTD.-2015JP00575

PATIENT

DRUGS (3)
  1. BENIDIPINE [Suspect]
     Active Substance: BENIDIPINE
     Dosage: 8 MG, QD
  2. DONEPEZIL [Suspect]
     Active Substance: DONEPEZIL
     Indication: DEMENTIA ALZHEIMER^S TYPE
     Dosage: 5 MG, QD
  3. ATORVASTATIN [Suspect]
     Active Substance: ATORVASTATIN
     Dosage: 10 MG, QD

REACTIONS (2)
  - Electrocardiogram QT prolonged [Recovering/Resolving]
  - Drug interaction [Recovering/Resolving]
